FAERS Safety Report 15685619 (Version 1)
Quarter: 2018Q4

REPORT INFORMATION
  Report Type: Other
  Country: GB (occurrence: GB)
  Receive Date: 20181204
  Receipt Date: 20181204
  Transmission Date: 20190205
  Serious: Yes (Other)
  Sender: FDA-Public Use
  Company Number: GB-EMD SERONO-E2B_90064970

PATIENT
  Age: 16 Year
  Sex: Male
  Weight: 130 kg

DRUGS (1)
  1. SOMATROPIN. [Suspect]
     Active Substance: SOMATROPIN
     Indication: PRADER-WILLI SYNDROME

REACTIONS (3)
  - Diabetic ketoacidosis [Recovered/Resolved]
  - Ketosis-prone diabetes mellitus [Recovered/Resolved]
  - Acute kidney injury [Recovered/Resolved]
